FAERS Safety Report 5453042-1 (Version None)
Quarter: 2007Q3

REPORT INFORMATION
  Report Type: 
  Country: None (occurrence: None)
  Receive Date: 20070914
  Receipt Date: 20070906
  Transmission Date: 20080115
  Serious: Yes (Hospitalization)
  Sender: FDA-Public Use
  Company Number: IT-BOEHRINGER INGELHEIM PHARMACEUTICALS, INC.-2007-IT-00307IT

PATIENT
  Sex: Male

DRUGS (1)
  1. MOBIC [Suspect]
     Indication: ARTHRALGIA
     Route: 048
     Dates: start: 20070814, end: 20070814

REACTIONS (3)
  - LARYNGEAL OEDEMA [None]
  - LIP OEDEMA [None]
  - TONGUE OEDEMA [None]
